FAERS Safety Report 12798151 (Version 3)
Quarter: 2016Q4

REPORT INFORMATION
  Report Type: Spontaneous
  Country: JP (occurrence: JP)
  Receive Date: 20160930
  Receipt Date: 20161223
  Transmission Date: 20170207
  Serious: Yes (Other)
  Sender: FDA-Public Use
  Company Number: JP-009507513-1609JPN013054

PATIENT
  Age: 81 Year
  Sex: Female
  Weight: 56 kg

DRUGS (6)
  1. ACELIO [Concomitant]
     Active Substance: ACETAMINOPHEN
     Indication: PAIN
     Dosage: 2400 MG, QD
     Route: 042
     Dates: start: 20150818, end: 20151026
  2. BELSOMRA [Suspect]
     Active Substance: SUVOREXANT
     Indication: INSOMNIA
     Dosage: 15 MG, QD
     Route: 048
     Dates: start: 20150821, end: 20150821
  3. OXIFAST [Concomitant]
     Active Substance: OXYCODONE
     Indication: PAIN
     Dosage: 36 MG, QD
     Route: 058
     Dates: start: 20150818, end: 20160214
  4. XYLOCAINE [Concomitant]
     Active Substance: LIDOCAINE HYDROCHLORIDE
     Indication: PAIN
     Dosage: 860 MG, QD
     Route: 058
     Dates: start: 20150818, end: 20160214
  5. TAKEPRON [Concomitant]
     Active Substance: LANSOPRAZOLE
     Indication: PROPHYLAXIS AGAINST GASTROINTESTINAL ULCER
     Dosage: 30 MG, QD
     Route: 042
     Dates: start: 20150818, end: 20151026
  6. RINDERON (BETAMETHASONE ACETATE (+) BETAMETHASONE SODIUM PHOSPHATE) [Concomitant]
     Indication: MALAISE
     Dosage: 4 MG, QD
     Route: 042
     Dates: start: 20150818, end: 20151026

REACTIONS (1)
  - Delirium [Recovered/Resolved]

NARRATIVE: CASE EVENT DATE: 20150822
